FAERS Safety Report 20999627 (Version 2)
Quarter: 2022Q3

REPORT INFORMATION
  Report Type: Spontaneous
  Country: US (occurrence: US)
  Receive Date: 20220623
  Receipt Date: 20220711
  Transmission Date: 20221027
  Serious: Yes (Other)
  Sender: FDA-Public Use
  Company Number: US-PFIZER INC-202200857760

PATIENT
  Age: 64 Year
  Sex: Male

DRUGS (2)
  1. INLYTA [Suspect]
     Active Substance: AXITINIB
     Dosage: 3 DF, 2X/DAY
     Dates: start: 20210311, end: 202106
  2. INLYTA [Suspect]
     Active Substance: AXITINIB
     Dosage: TAKE 1 TABLET TWICE DAILY
     Dates: start: 20220613

REACTIONS (13)
  - Colonic fistula [Recovered/Resolved]
  - Blister [Recovered/Resolved]
  - Hormone level abnormal [Recovered/Resolved]
  - Asthenia [Recovered/Resolved]
  - Gait disturbance [Recovered/Resolved]
  - Thyroid disorder [Recovered/Resolved]
  - Pancreatic disorder [Recovered/Resolved]
  - Constipation [Unknown]
  - Bone pain [Unknown]
  - Fatigue [Unknown]
  - Pain in extremity [Unknown]
  - Lung disorder [Unknown]
  - Arthralgia [Unknown]
